FAERS Safety Report 16466390 (Version 1)
Quarter: 2019Q2

REPORT INFORMATION
  Report Type: Spontaneous
  Country: SE (occurrence: SE)
  Receive Date: 20190622
  Receipt Date: 20190622
  Transmission Date: 20190711
  Serious: Yes (Other)
  Sender: FDA-Public Use
  Company Number: SE-ACCORD-134206

PATIENT
  Sex: Male

DRUGS (6)
  1. QUETIAPINE. [Suspect]
     Active Substance: QUETIAPINE
     Indication: BIPOLAR DISORDER
  2. SERTRALINE [Concomitant]
     Active Substance: SERTRALINE HYDROCHLORIDE
     Dosage: 50 MG
  3. SPIRONOLACTONE. [Concomitant]
     Active Substance: SPIRONOLACTONE
  4. FELODIPINE. [Concomitant]
     Active Substance: FELODIPINE
  5. METOPROLOL. [Concomitant]
     Active Substance: METOPROLOL
  6. HYDROCHLOROTHIAZIDE/LOSARTAN POTASSIUM [Concomitant]

REACTIONS (1)
  - Erectile dysfunction [Unknown]
